FAERS Safety Report 10329880 (Version 2)
Quarter: 2014Q3

REPORT INFORMATION
  Report Type: Report from Study
  Country: DE (occurrence: DE)
  Receive Date: 20140721
  Receipt Date: 20140902
  Transmission Date: 20150326
  Serious: Yes (Hospitalization)
  Sender: FDA-Public Use
  Company Number: DE-SA-2014SA095074

PATIENT
  Sex: Female

DRUGS (2)
  1. AUBAGIO [Suspect]
     Active Substance: TERIFLUNOMIDE
     Indication: MULTIPLE SCLEROSIS
     Route: 048
  2. AUBAGIO [Suspect]
     Active Substance: TERIFLUNOMIDE
     Indication: MULTIPLE SCLEROSIS
     Route: 048
     Dates: start: 20140515

REACTIONS (6)
  - Restlessness [Unknown]
  - Diarrhoea [Recovering/Resolving]
  - Myalgia [Unknown]
  - Visual impairment [Recovering/Resolving]
  - Laboratory test abnormal [Unknown]
  - Drug dose omission [Unknown]
